FAERS Safety Report 13653972 (Version 2)
Quarter: 2017Q2

REPORT INFORMATION
  Report Type: Spontaneous
  Country: FR (occurrence: FR)
  Receive Date: 20170614
  Receipt Date: 20170623
  Transmission Date: 20170830
  Serious: Yes (Hospitalization, Other)
  Sender: FDA-Public Use
  Company Number: FR-PFIZER INC-2017250793

PATIENT
  Age: 84 Year
  Sex: Male

DRUGS (4)
  1. DALACINE [Suspect]
     Active Substance: CLINDAMYCIN HYDROCHLORIDE
     Indication: DEVICE RELATED INFECTION
     Dosage: 600 MG, 3X/DAY
     Route: 048
     Dates: start: 20170509, end: 20170523
  2. TAZOCILLINE [Concomitant]
     Active Substance: PIPERACILLIN SODIUM\TAZOBACTAM SODIUM
     Indication: ANTIBIOTIC THERAPY
     Dosage: UNK
     Dates: end: 20170509
  3. ZYVOXID [Concomitant]
     Active Substance: LINEZOLID
     Indication: ANTIBIOTIC THERAPY
     Dosage: UNK
     Dates: end: 20170509
  4. FUCIDINE [Suspect]
     Active Substance: FUSIDIC ACID
     Indication: DEVICE RELATED INFECTION
     Dosage: 500 MG, 3X/DAY
     Route: 048
     Dates: start: 20170509, end: 20170523

REACTIONS (4)
  - Renal failure [Unknown]
  - Rash maculo-papular [Recovered/Resolved]
  - Eosinophilia [Unknown]
  - Pruritus [Recovered/Resolved]

NARRATIVE: CASE EVENT DATE: 20170518
